FAERS Safety Report 13608447 (Version 3)
Quarter: 2020Q1

REPORT INFORMATION
  Report Type: Spontaneous
  Country: FR (occurrence: FR)
  Receive Date: 20170602
  Receipt Date: 20200124
  Transmission Date: 20200409
  Serious: Yes (Death, Other)
  Sender: FDA-Public Use
  Company Number: FR-ABBVIE-17P-056-1994860-00

PATIENT
  Age: 7 Day
  Sex: Male

DRUGS (2)
  1. DEPAKINE CHRONO [Suspect]
     Active Substance: VALPROATE SODIUM
     Route: 062
     Dates: start: 201101
  2. DEPAKINE CHRONO [Suspect]
     Active Substance: VALPROATE SODIUM
     Indication: MATERNAL EXPOSURE TIMING UNSPECIFIED
     Route: 064
     Dates: start: 20110825

REACTIONS (35)
  - Hypercapnia [Unknown]
  - Bronchomalacia [Unknown]
  - Pulmonary hypoplasia [Unknown]
  - Pulmonary arterial hypertension [Unknown]
  - Bronchial disorder [Unknown]
  - Ventricular dyskinesia [Unknown]
  - Exomphalos [Fatal]
  - Foetal exposure during pregnancy [Unknown]
  - Intracardiac thrombus [Unknown]
  - Staphylococcal infection [Unknown]
  - Teratoma [Unknown]
  - Tricuspid valve incompetence [Unknown]
  - Cardiac disorder [Unknown]
  - Hypoxia [Unknown]
  - Brain injury [Unknown]
  - Extrapyramidal disorder [Unknown]
  - Jugular vein thrombosis [Unknown]
  - Fatigue [Unknown]
  - Infected skin ulcer [Unknown]
  - Vomiting [Unknown]
  - Sepsis [Unknown]
  - Clonus [Unknown]
  - Hepatomegaly [Unknown]
  - Ventricular enlargement [Unknown]
  - Myoclonus [Unknown]
  - Bronchospasm [Unknown]
  - Malaise [Unknown]
  - Arachnoid cyst [Unknown]
  - Respiratory disorder [Unknown]
  - Cardiac failure [Unknown]
  - Pyramidal tract syndrome [Unknown]
  - Superior vena cava syndrome [Unknown]
  - Decubitus ulcer [Unknown]
  - Hypertension [Unknown]
  - Infection [Unknown]

NARRATIVE: CASE EVENT DATE: 201109
